FAERS Safety Report 17552283 (Version 1)
Quarter: 2020Q1

REPORT INFORMATION
  Report Type: Spontaneous
  Country: US (occurrence: US)
  Receive Date: 20200317
  Receipt Date: 20200317
  Transmission Date: 20200409
  Serious: Yes (Other)
  Sender: FDA-Public Use
  Company Number: US-MATRIXX INITIATIVES, INC.-2081708

PATIENT
  Sex: Male

DRUGS (3)
  1. ZICAM COLD REMEDY RAPIDMELTS [Suspect]
     Active Substance: HOMEOPATHICS\ZINC ACETATE ANHYDROUS\ZINC GLUCONATE
     Indication: NASAL CONGESTION
     Route: 048
     Dates: start: 20200304, end: 20200304
  2. LEVOTHYROXINE. [Concomitant]
     Active Substance: LEVOTHYROXINE
  3. SIMVASTATIN. [Concomitant]
     Active Substance: SIMVASTATIN

REACTIONS (3)
  - Dyspnoea [None]
  - Nasal congestion [None]
  - Laryngitis [None]
